FAERS Safety Report 25543225 (Version 5)
Quarter: 2025Q4

REPORT INFORMATION
  Report Type: Spontaneous
  Country: US (occurrence: US)
  Receive Date: 20250711
  Receipt Date: 20251231
  Transmission Date: 20260118
  Serious: Yes (Other)
  Sender: ROCHE
  Company Number: US-ROCHE-10000331949

PATIENT
  Age: 44 Year
  Sex: Female

DRUGS (2)
  1. XOLAIR PFS [Suspect]
     Active Substance: OMALIZUMAB
     Indication: Urticaria
     Dosage: 300MG/2ML
     Route: 058
     Dates: start: 202502
  2. XOLAIR PFS [Suspect]
     Active Substance: OMALIZUMAB

REACTIONS (6)
  - Gastrointestinal disorder [Unknown]
  - Ill-defined disorder [Unknown]
  - Urticaria [Unknown]
  - Laryngeal oedema [Unknown]
  - Nasopharyngitis [Unknown]
  - Pharyngeal swelling [Recovering/Resolving]

NARRATIVE: CASE EVENT DATE: 20250201
